FAERS Safety Report 21641171 (Version 2)
Quarter: 2022Q4

REPORT INFORMATION
  Report Type: Spontaneous
  Country: US (occurrence: US)
  Receive Date: 20221125
  Receipt Date: 20221205
  Transmission Date: 20230112
  Serious: No
  Sender: FDA-Public Use
  Company Number: US-TOLMAR, INC.-22US037652

PATIENT
  Sex: Male

DRUGS (1)
  1. KETOCONAZOLE [Suspect]
     Active Substance: KETOCONAZOLE
     Indication: Dandruff
     Dosage: ONCE A WEEK (PEA SIZE AMOUNT)

REACTIONS (1)
  - Off label use [Unknown]
